FAERS Safety Report 16119340 (Version 1)
Quarter: 2019Q1

REPORT INFORMATION
  Report Type: Spontaneous
  Country: US (occurrence: US)
  Receive Date: 20190326
  Receipt Date: 20190326
  Transmission Date: 20190418
  Serious: No
  Sender: FDA-Public Use
  Company Number: US-PFIZER INC-2019125288

PATIENT
  Age: 65 Year
  Sex: Female

DRUGS (1)
  1. EUCRISA [Suspect]
     Active Substance: CRISABOROLE
     Indication: PRURITUS
     Dosage: UNK (APPLY TO AFFECTED AREAS ONCE TO TWICE A DAY)
     Dates: start: 201808

REACTIONS (2)
  - Drug ineffective for unapproved indication [Unknown]
  - Product use issue [Unknown]

NARRATIVE: CASE EVENT DATE: 201808
